FAERS Safety Report 8255801-9 (Version None)
Quarter: 2012Q2

REPORT INFORMATION
  Report Type: 
  Country: None (occurrence: None)
  Receive Date: 20120403
  Receipt Date: 20120323
  Transmission Date: 20120825
  Serious: Yes (Hospitalization)
  Sender: FDA-Public Use
  Company Number: FR-VERTEX PHARMACEUTICALS INC.-000000000000000414

PATIENT
  Sex: Female

DRUGS (8)
  1. COPEGUS [Concomitant]
     Indication: HEPATITIS C
     Route: 048
     Dates: start: 20111101
  2. PEGASYS [Concomitant]
     Indication: HEPATITIS C
     Route: 058
     Dates: start: 20111101
  3. TENORMIN [Concomitant]
     Indication: HYPERTENSION
     Dates: start: 20000101
  4. INCIVO (TELAPREVIR) [Suspect]
     Indication: HEPATITIS C
     Dosage: DOSAGE FORM: TABLET
     Route: 048
     Dates: start: 20111201, end: 20120229
  5. PERINDOPRIL ERBUMINE [Concomitant]
  6. FUNGIZONE [Concomitant]
  7. LYRICA [Concomitant]
  8. FERROUS SULFATE TAB [Concomitant]

REACTIONS (1)
  - PANCYTOPENIA [None]
